FAERS Safety Report 6113825-1 (Version None)
Quarter: 2009Q1

REPORT INFORMATION
  Report Type: 
  Country: None (occurrence: None)
  Receive Date: 20090312
  Receipt Date: 20090309
  Transmission Date: 20090719
  Serious: Yes (Hospitalization)
  Sender: FDA-Public Use
  Company Number: US-ABBOTT-08P-163-0483972-00

PATIENT
  Sex: Male
  Weight: 75.818 kg

DRUGS (2)
  1. LUPRON DEPOT [Suspect]
     Indication: PROSTATE CANCER
     Route: 030
     Dates: start: 20080101
  2. ADVIL [Concomitant]
     Indication: PAIN

REACTIONS (9)
  - ASTHENIA [None]
  - BALANCE DISORDER [None]
  - CONSTIPATION [None]
  - DECREASED APPETITE [None]
  - DIZZINESS [None]
  - GAIT DISTURBANCE [None]
  - HOSPITALISATION [None]
  - HOT FLUSH [None]
  - NAUSEA [None]
